FAERS Safety Report 24606143 (Version 2)
Quarter: 2024Q4

REPORT INFORMATION
  Report Type: Spontaneous
  Country: US (occurrence: US)
  Receive Date: 20241112
  Receipt Date: 20241129
  Transmission Date: 20250114
  Serious: Yes (Other)
  Sender: ABBVIE
  Company Number: US-ABBVIE-5990450

PATIENT
  Age: 82 Year
  Sex: Female

DRUGS (1)
  1. SYNTHROID [Suspect]
     Active Substance: LEVOTHYROXINE SODIUM
     Indication: Product used for unknown indication
     Dosage: START DATE: 40 + YEARS
     Route: 048

REACTIONS (4)
  - Cataract operation complication [Unknown]
  - Cataract [Unknown]
  - Macular degeneration [Unknown]
  - Eye pain [Unknown]

NARRATIVE: CASE EVENT DATE: 20240101
